FAERS Safety Report 8535984 (Version 2)
Quarter: 2013Q4

REPORT INFORMATION
  Report Type: Report from Study
  Country: US (occurrence: US)
  Receive Date: 20120430
  Receipt Date: 20131105
  Transmission Date: 20140711
  Serious: Yes (Hospitalization, Other)
  Sender: FDA-Public Use
  Company Number: US-BRISTOL-MYERS SQUIBB COMPANY-15316458

PATIENT
  Age: 59 Year
  Sex: Male

DRUGS (14)
  1. IPILIMUMAB [Suspect]
     Indication: MALIGNANT MELANOMA
     Dosage: NO OF COURSES:3?22SEP10
     Route: 042
     Dates: start: 20100810, end: 20101027
  2. SODIUM CHLORIDE [Concomitant]
     Indication: DIARRHOEA
     Dosage: IV SOLN,NACL 0.9% IV PREMIX?1 LITER IV PUSH ON 29-SEP-2010.
     Route: 040
     Dates: start: 20100929, end: 20100929
  3. SOLU-MEDROL [Concomitant]
     Indication: DIARRHOEA
     Dosage: INJECTION
     Route: 042
  4. FLUTICASONE [Concomitant]
     Indication: HYPERSENSITIVITY
     Dosage: 2 SPRAYS IN EACH NOSTRILS DAILY?25MCG/DAY
     Route: 045
     Dates: start: 2005
  5. ATENOLOL [Concomitant]
     Indication: BLOOD PRESSURE
     Dosage: TAKE 1 TABLET
     Route: 048
     Dates: start: 20000530
  6. AMLODIPINE [Concomitant]
     Indication: BLOOD PRESSURE
     Dosage: TAKE 1 TABLET
     Route: 048
     Dates: start: 20000530, end: 20101004
  7. ZOLPIDEM [Concomitant]
     Indication: INSOMNIA
     Dosage: 1 TABLET DAILY AT BED TIME ?1HR
     Route: 048
     Dates: start: 20101004
  8. OMEPRAZOLE [Concomitant]
     Indication: GASTROOESOPHAGEAL REFLUX DISEASE
     Dosage: 1 CAPSULE DAILY
     Route: 048
     Dates: start: 2007
  9. HYDROCHLOROTHIAZIDE [Concomitant]
     Indication: BLOOD PRESSURE MANAGEMENT
     Dosage: 1 TABLET EVERY MORNING
     Route: 048
     Dates: start: 20000530, end: 20101004
  10. LISINOPRIL [Concomitant]
     Indication: BLOOD PRESSURE INCREASED
     Dosage: TAKE 1 TABLET
     Route: 048
     Dates: start: 20101004
  11. ONDANSETRON HCL [Concomitant]
     Indication: VOMITING
     Dosage: 1 TABLET AS NEEDED
     Route: 048
  12. PROCHLORPERAZINE MALEATE [Concomitant]
     Indication: NAUSEA
     Route: 048
     Dates: start: 20100929
  13. PROCHLORPERAZINE MALEATE [Concomitant]
     Indication: VOMITING
     Route: 048
     Dates: start: 20100929
  14. VITAMIN D3 [Concomitant]
     Indication: VITAMIN SUPPLEMENTATION
     Dosage: 1DF=2000 UNITS NOT SPECIFIED
     Dates: start: 20100728

REACTIONS (6)
  - Colitis [Recovered/Resolved]
  - Renal failure acute [Recovered/Resolved]
  - Hyponatraemia [Recovered/Resolved]
  - Hyperkalaemia [Recovered/Resolved]
  - Dehydration [Recovered/Resolved]
  - Diarrhoea [Recovered/Resolved]
